FAERS Safety Report 6623224-1 (Version None)
Quarter: 2010Q1

REPORT INFORMATION
  Report Type: 
  Country: None (occurrence: None)
  Receive Date: 20100310
  Receipt Date: 20100302
  Transmission Date: 20100710
  Serious: Yes (Hospitalization)
  Sender: FDA-Public Use
  Company Number: CN-JNJFOC-20100301030

PATIENT
  Age: 35 Year
  Sex: Female
  Weight: 72 kg

DRUGS (9)
  1. RISPERDAL [Suspect]
     Indication: BIPOLAR DISORDER
     Route: 048
  2. RISPERDAL [Suspect]
     Route: 048
  3. RISPERDAL [Suspect]
     Route: 048
  4. RISPERDAL [Suspect]
     Route: 048
  5. RISPERDAL [Suspect]
     Route: 048
  6. RISPERDAL [Suspect]
     Route: 048
  7. ALPRAZOLAM [Concomitant]
     Indication: AFFECTIVE DISORDER
     Route: 065
  8. CARBAMAZEPINE [Concomitant]
     Indication: AFFECTIVE DISORDER
     Route: 065
  9. VALPROATE SODIUM [Concomitant]
     Indication: AFFECTIVE DISORDER
     Route: 065

REACTIONS (4)
  - BREAST HYPERPLASIA [None]
  - INCREASED APPETITE [None]
  - OEDEMA PERIPHERAL [None]
  - WEIGHT INCREASED [None]
